FAERS Safety Report 10174004 (Version 1)
Quarter: 2014Q2

REPORT INFORMATION
  Report Type: Spontaneous
  Country: GB (occurrence: None)
  Receive Date: 20140513
  Receipt Date: 20140513
  Transmission Date: 20141212
  Serious: Yes (Other)
  Sender: FDA-Public Use
  Company Number: 2014MPI00527

PATIENT
  Sex: Male

DRUGS (2)
  1. ADCETRIS [Suspect]
     Indication: HODGKIN^S DISEASE
  2. ADCETRIS [Suspect]
     Indication: NEOPLASM RECURRENCE

REACTIONS (1)
  - Diffuse large B-cell lymphoma [None]
